FAERS Safety Report 10191368 (Version 1)
Quarter: 2014Q2

REPORT INFORMATION
  Report Type: Spontaneous
  Country: US (occurrence: None)
  Receive Date: 20140522
  Receipt Date: 20140522
  Transmission Date: 20141212
  Serious: Yes (Disabling)
  Sender: FDA-Public Use
  Company Number: None

PATIENT
  Age: 62 Year
  Sex: Female
  Weight: 48.99 kg

DRUGS (1)
  1. AMLODIPINE BESYLATE 5 MG TABLET [Suspect]
     Indication: RAYNAUD^S PHENOMENON
     Dates: end: 20140505

REACTIONS (5)
  - Dysgeusia [None]
  - Decreased appetite [None]
  - Drug ineffective [None]
  - Dysgeusia [None]
  - Malaise [None]
